FAERS Safety Report 13161845 (Version 1)
Quarter: 2017Q1

REPORT INFORMATION
  Report Type: Report from Study
  Country: SI (occurrence: SI)
  Receive Date: 20170130
  Receipt Date: 20170130
  Transmission Date: 20170428
  Serious: Yes (Disabling)
  Sender: FDA-Public Use
  Company Number: SI-ASTRAZENECA-2017SE08715

PATIENT
  Age: 15388 Day
  Sex: Female
  Weight: 75 kg

DRUGS (4)
  1. BRILIQUE [Suspect]
     Active Substance: TICAGRELOR
     Indication: ACUTE CORONARY SYNDROME
     Dosage: INITIAL LOADING DOSE OF 180MG, THEN 90MG TWICE DAILY
     Route: 048
  2. ASA [Suspect]
     Active Substance: ASPIRIN
     Indication: ACUTE CORONARY SYNDROME
     Dosage: INITIAL LOADING DOSE OF 250-500MG, THEN 100MG DAILY
     Route: 042
  3. BRILIQUE [Suspect]
     Active Substance: TICAGRELOR
     Indication: PERCUTANEOUS CORONARY INTERVENTION
     Dosage: INITIAL LOADING DOSE OF 180MG, THEN 90MG TWICE DAILY
     Route: 048
  4. ASA [Suspect]
     Active Substance: ASPIRIN
     Indication: PERCUTANEOUS CORONARY INTERVENTION
     Dosage: INITIAL LOADING DOSE OF 250-500MG, THEN 100MG DAILY
     Route: 042

REACTIONS (1)
  - Ischaemic stroke [Unknown]

NARRATIVE: CASE EVENT DATE: 20150420
